FAERS Safety Report 7685757-9 (Version None)
Quarter: 2011Q3

REPORT INFORMATION
  Report Type: 
  Country: None (occurrence: None)
  Receive Date: 20110815
  Receipt Date: 20110815
  Transmission Date: 20111222
  Serious: Yes (Hospitalization, Other)
  Sender: FDA-Public Use
  Company Number: None

PATIENT
  Sex: Male
  Weight: 94 kg

DRUGS (8)
  1. HALOPERIDOL [Concomitant]
     Route: 042
  2. OLANZAPINE [Concomitant]
     Indication: AGITATION
     Dosage: 5MG
     Route: 048
     Dates: start: 20110625, end: 20110703
  3. NOREPINEPHRINE BITARTRATE-LEVOPHED [Concomitant]
     Route: 042
  4. OLANZAPINE (ZYPREXA ZYDIS) [Concomitant]
     Route: 048
  5. DIFLUCAN [Concomitant]
     Route: 042
  6. SEROQUEL [Suspect]
     Indication: AGITATION
     Dosage: 50MG
     Route: 048
     Dates: start: 20110707, end: 20110709
  7. ATIVAN [Concomitant]
     Route: 042
  8. PROTONIX [Concomitant]
     Route: 042

REACTIONS (6)
  - ABDOMINAL SEPSIS [None]
  - NEUTROPENIA [None]
  - GASTROINTESTINAL NECROSIS [None]
  - RESPIRATORY FAILURE [None]
  - PYREXIA [None]
  - RENAL FAILURE ACUTE [None]
